FAERS Safety Report 9714284 (Version 2)
Quarter: 2013Q4

REPORT INFORMATION
  Report Type: Spontaneous
  Country: US (occurrence: US)
  Receive Date: 20131126
  Receipt Date: 20131126
  Transmission Date: 20140711
  Serious: No
  Sender: FDA-Public Use
  Company Number: US-GILEAD-2008-0019286

PATIENT
  Sex: Male
  Weight: 78.02 kg

DRUGS (12)
  1. LETAIRIS [Suspect]
     Indication: PULMONARY ARTERIAL HYPERTENSION
     Route: 048
     Dates: start: 20081128
  2. LASIX [Concomitant]
  3. ASPRIN [Concomitant]
  4. PLAVIX [Concomitant]
  5. HUMALOG [Concomitant]
  6. PRILOSEC [Concomitant]
  7. ALDACTONE [Concomitant]
  8. PAXIL [Concomitant]
  9. PREDNISONE [Concomitant]
  10. DIOVAN [Concomitant]
  11. METOLAZONE [Concomitant]
  12. LEVOXYL [Concomitant]

REACTIONS (1)
  - Blood glucose increased [Unknown]
